FAERS Safety Report 12402681 (Version 1)
Quarter: 2016Q2

REPORT INFORMATION
  Report Type: Spontaneous
  Country: US (occurrence: US)
  Receive Date: 20160525
  Receipt Date: 20160525
  Transmission Date: 20160815
  Serious: No
  Sender: FDA-Public Use
  Company Number: US-TEVA-617532USA

PATIENT
  Age: 90 Year
  Sex: Female

DRUGS (1)
  1. CLOPIDOGREL [Suspect]
     Active Substance: CLOPIDOGREL BISULFATE

REACTIONS (1)
  - Dysgeusia [Unknown]

NARRATIVE: CASE EVENT DATE: 20151208
